FAERS Safety Report 22816105 (Version 5)
Quarter: 2023Q4

REPORT INFORMATION
  Report Type: Spontaneous
  Country: US (occurrence: US)
  Receive Date: 20230811
  Receipt Date: 20231129
  Transmission Date: 20240109
  Serious: No
  Sender: FDA-Public Use
  Company Number: US-AMGEN-USASP2023139791

PATIENT
  Age: 68 Year
  Sex: Female

DRUGS (3)
  1. TAVNEOS [Suspect]
     Active Substance: AVACOPAN
     Indication: Granulomatosis with polyangiitis
     Dosage: 30 MILLIGRAM, BID (TAKE 3 CAPSULES (30 MG) BY MOUTH DAILY IN MORNING AND 3 CAPSULES AT BEDTIME)
     Route: 048
     Dates: start: 20230719
  2. TAVNEOS [Suspect]
     Active Substance: AVACOPAN
     Dosage: 30 MILLIGRAM, BID (TAKE 3 CAPSULES (30 MG) BY MOUTH DAILY IN THE MORNING AND 3 CAPSULES (30 MG) DAIL
     Route: 048
  3. TAVNEOS [Suspect]
     Active Substance: AVACOPAN
     Dosage: 30 MILLIGRAM, BID (TAVNEOS 10 MG CAPSULE |TAKE 3 CAPSULES BY MOUTH DAILY IN MORNING AND 3 CAPSULES D
     Route: 048
     Dates: start: 2023

REACTIONS (6)
  - Limb discomfort [Unknown]
  - Dyspepsia [Unknown]
  - Stomatitis [Unknown]
  - Fatigue [Recovered/Resolved]
  - Nausea [Recovered/Resolved]
  - Headache [Unknown]

NARRATIVE: CASE EVENT DATE: 20230101
